FAERS Safety Report 8721549 (Version 2)
Quarter: 2012Q4

REPORT INFORMATION
  Report Type: 
  Country: US (occurrence: US)
  Receive Date: 20120813
  Receipt Date: 20120830
  Transmission Date: 20130627
  Serious: Yes (Hospitalization, Other)
  Sender: FDA-Public Use
  Company Number: PHEH2012US015675

PATIENT
  Age: 84 Year
  Sex: Female
  Weight: 81 kg

DRUGS (10)
  1. GLEEVEC [Suspect]
     Indication: CHRONIC MYELOID LEUKAEMIA
     Dosage: 400 mg, QD
     Route: 048
     Dates: start: 2006
  2. HUMULIN R [Concomitant]
  3. HUMULIN [Concomitant]
  4. LASIX [Concomitant]
  5. TRICOR [Concomitant]
  6. CALCITRIOL [Concomitant]
  7. ATENOLOL [Concomitant]
  8. AMITRIPTYLINE [Concomitant]
  9. ALLOPURINOL [Concomitant]
  10. POTASSIUM [Concomitant]

REACTIONS (8)
  - Cardiac disorder [Unknown]
  - Renal failure chronic [Unknown]
  - Anaemia [Unknown]
  - Skin fragility [Unknown]
  - Contusion [Unknown]
  - Obesity [Unknown]
  - Thrombocytopenia [Unknown]
  - Nephrogenic anaemia [None]
